FAERS Safety Report 8085809-8 (Version None)
Quarter: 2012Q1

REPORT INFORMATION
  Report Type: 
  Country: None (occurrence: None)
  Receive Date: 20120128
  Receipt Date: 20110607
  Transmission Date: 20120608
  Serious: No
  Sender: FDA-Public Use
  Company Number: US-ABBOTT-11P-163-0731318-00

PATIENT
  Age: 41 Year
  Sex: Female

DRUGS (6)
  1. PREDNISONE TAB [Concomitant]
     Indication: INFLAMMATION
  2. HUMIRA [Suspect]
     Dates: start: 20110607
  3. FEXOFENADINE [Concomitant]
     Indication: HYPERSENSITIVITY
  4. PRILOSEC [Concomitant]
     Indication: GASTROOESOPHAGEAL REFLUX DISEASE
  5. HUMIRA [Suspect]
     Indication: RHEUMATOID ARTHRITIS
     Dates: start: 20110501, end: 20110501
  6. MELOXICAM [Concomitant]
     Indication: ARTHRALGIA

REACTIONS (4)
  - INCORRECT DOSE ADMINISTERED [None]
  - DEVICE MALFUNCTION [None]
  - GASTROINTESTINAL INFECTION [None]
  - WHITE BLOOD CELL COUNT DECREASED [None]
